FAERS Safety Report 12903459 (Version 2)
Quarter: 2022Q2

REPORT INFORMATION
  Report Type: Report from Study
  Country: US (occurrence: US)
  Receive Date: 20161102
  Receipt Date: 20220616
  Transmission Date: 20220721
  Serious: Yes (Death, Hospitalization)
  Sender: FDA-Public Use
  Company Number: US-009507513-1610USA011878

PATIENT
  Age: 65 Year
  Sex: Female

DRUGS (14)
  1. TEMODAR [Suspect]
     Active Substance: TEMOZOLOMIDE
     Indication: Glioblastoma multiforme
     Dosage: 75 MG/M2, DAYS 1 THROUGH 5 OF 28 DAY CYCLE
     Route: 048
     Dates: start: 20160314, end: 20160420
  2. POTASSIUM CHLORIDE [Concomitant]
     Active Substance: POTASSIUM CHLORIDE
     Indication: Hypokalaemia
     Dosage: 15 ML, QD
     Route: 048
     Dates: start: 20160314, end: 20160413
  3. PROCHLORPERAZINE MALEATE [Concomitant]
     Active Substance: PROCHLORPERAZINE MALEATE
     Indication: Nausea
     Dosage: 10 MG, PRN
     Route: 048
     Dates: start: 20160314, end: 20160428
  4. CARVEDILOL [Concomitant]
     Active Substance: CARVEDILOL
     Indication: Hypertension
     Dosage: 3.125 MG, BID
     Route: 048
     Dates: start: 20101109, end: 20160428
  5. COMBIVENT RESPIMAT [Concomitant]
     Active Substance: ALBUTEROL SULFATE\IPRATROPIUM BROMIDE
     Indication: Chronic obstructive pulmonary disease
     Dosage: 20-100 MICROGRAM/ACT, QID
     Route: 055
     Dates: start: 2015, end: 20160428
  6. CRESTOR [Concomitant]
     Active Substance: ROSUVASTATIN CALCIUM
     Indication: Hypercholesterolaemia
     Dosage: 20 MG, QD
     Route: 048
     Dates: start: 20101020, end: 20160428
  7. LEVOTHYROXINE SODIUM [Concomitant]
     Active Substance: LEVOTHYROXINE SODIUM
     Indication: Hypothyroidism
     Dosage: 25 MICROGRAM, QD
     Route: 048
     Dates: start: 2010, end: 20160428
  8. LISINOPRIL [Concomitant]
     Active Substance: LISINOPRIL
     Indication: Hypertension
     Dosage: 2.5 MG, QD
     Route: 048
     Dates: start: 20101020, end: 20160428
  9. OS CAL [CALCIUM CARBONATE] [Concomitant]
     Indication: Osteoporosis
     Dosage: 1 TABLET, BID
     Dates: start: 20101109, end: 20160428
  10. PROAIR HFA [Concomitant]
     Active Substance: ALBUTEROL SULFATE
     Indication: Chronic obstructive pulmonary disease
     Dosage: 108 (90 BASE) MICROGRAM/ACT, PRN
     Route: 055
     Dates: start: 2015, end: 20160428
  11. DEXAMETHASONE [Concomitant]
     Active Substance: DEXAMETHASONE
     Indication: Aphasia
     Dosage: 4 MG, BID
     Route: 048
     Dates: start: 20160322, end: 20160428
  12. ALBUTEROL SULFATE\IPRATROPIUM BROMIDE [Concomitant]
     Active Substance: ALBUTEROL SULFATE\IPRATROPIUM BROMIDE
     Indication: Chronic obstructive pulmonary disease
     Dosage: 20-100 MICROGRAM/ACT, QID
     Route: 055
     Dates: start: 20160411, end: 20160428
  13. FLUCONAZOLE [Concomitant]
     Active Substance: FLUCONAZOLE
     Indication: Candida infection
     Dosage: 200 MG, QD
     Route: 048
     Dates: start: 20160411, end: 20160418
  14. PREDNISOLONE ACETATE [Concomitant]
     Active Substance: PREDNISOLONE ACETATE
     Dosage: 1 %, TID; WEEK 5 DAY 1; 1-2 GTTS
     Dates: start: 20160409, end: 20160415

REACTIONS (3)
  - Malignant neoplasm progression [Fatal]
  - Urinary tract infection [Recovered/Resolved]
  - Hypophagia [Recovered/Resolved]

NARRATIVE: CASE EVENT DATE: 20160412
